FAERS Safety Report 6167305-8 (Version None)
Quarter: 2009Q2

REPORT INFORMATION
  Report Type: 
  Country: None (occurrence: None)
  Receive Date: 20090424
  Receipt Date: 20090414
  Transmission Date: 20091009
  Serious: Yes (Other)
  Sender: FDA-Public Use
  Company Number: BE-ELI_LILLY_AND_COMPANY-BE200809003028

PATIENT
  Sex: Female

DRUGS (3)
  1. CYMBALTA [Suspect]
     Indication: DEPRESSION
     Dosage: 60 MG, DAILY (1/D)
     Route: 058
     Dates: start: 20080401
  2. MULTI-VITAMIN [Concomitant]
     Indication: PREGNANCY
     Dosage: UNK, UNKNOWN
     Route: 065
  3. MAGNESIUM SULFATE [Concomitant]
     Indication: MUSCLE SPASMS
     Dosage: UNK, UNKNOWN
     Route: 065
     Dates: start: 20090101, end: 20090401

REACTIONS (3)
  - DRUG EXPOSURE DURING PREGNANCY [None]
  - DYSPEPSIA [None]
  - MECONIUM STAIN [None]
